FAERS Safety Report 6760000-3 (Version None)
Quarter: 2010Q2

REPORT INFORMATION
  Report Type: 
  Country: None (occurrence: None)
  Receive Date: 20100608
  Receipt Date: 20100525
  Transmission Date: 20101027
  Serious: Yes (Hospitalization)
  Sender: FDA-Public Use
  Company Number: US-ELI_LILLY_AND_COMPANY-US201005007148

PATIENT
  Sex: Male

DRUGS (11)
  1. GEMCITABINE HYDROCHLORIDE [Suspect]
     Indication: TRANSITIONAL CELL CARCINOMA
     Dosage: 1552 MG, OTHER
     Route: 042
     Dates: start: 20100422
  2. CARBOPLATIN [Suspect]
     Indication: TRANSITIONAL CELL CARCINOMA
     Dosage: 450 MG, OTHER
     Route: 042
     Dates: start: 20100422
  3. PACLITAXEL [Suspect]
     Indication: TRANSITIONAL CELL CARCINOMA
     Dosage: 504 MG, UNK
     Route: 042
     Dates: start: 20100422
  4. ALLOPURINOL [Concomitant]
     Route: 048
  5. CALCIUM CARBONATE [Concomitant]
  6. METOPROLOL TARTRATE [Concomitant]
     Dosage: 24 MG, UNK
     Route: 048
  7. ONDANSETRON [Concomitant]
     Dosage: 40 MG, UNK
     Route: 048
  8. OLMESARTAN MEDOXOMIL [Concomitant]
     Dosage: 40 MG, DAILY (1/D)
     Route: 048
  9. OMEPRAZOLE [Concomitant]
     Dosage: 30 MG, UNK
  10. SIMVASTATIN [Concomitant]
     Dosage: 40 MG, UNK
  11. ASPARTAME [Concomitant]

REACTIONS (2)
  - HYPONATRAEMIA [None]
  - INAPPROPRIATE ANTIDIURETIC HORMONE SECRETION [None]
